FAERS Safety Report 19096612 (Version 2)
Quarter: 2021Q2

REPORT INFORMATION
  Report Type: Spontaneous
  Country: US (occurrence: US)
  Receive Date: 20210406
  Receipt Date: 20210427
  Transmission Date: 20210717
  Serious: No
  Sender: FDA-Public Use
  Company Number: US-ASTRAZENECA-2021A205466

PATIENT
  Sex: Male
  Weight: 113.4 kg

DRUGS (2)
  1. BYDUREON BCISE [Suspect]
     Active Substance: EXENATIDE
     Indication: TYPE 2 DIABETES MELLITUS
     Route: 058
     Dates: start: 2020
  2. BYDUREON BCISE [Suspect]
     Active Substance: EXENATIDE
     Indication: TYPE 2 DIABETES MELLITUS
     Dosage: STARTED BCISE AGAIN ABOUT 2 WEEKS AGO
     Route: 058

REACTIONS (5)
  - Inability to afford medication [Unknown]
  - Injection site haemorrhage [Unknown]
  - Device leakage [Unknown]
  - Intentional device misuse [Unknown]
  - Glycosylated haemoglobin increased [Unknown]
